FAERS Safety Report 6166589-X (Version None)
Quarter: 2009Q2

REPORT INFORMATION
  Report Type: 
  Country: None (occurrence: None)
  Receive Date: 20090422
  Receipt Date: 20090417
  Transmission Date: 20091009
  Serious: No
  Sender: FDA-Public Use
  Company Number: 2009003942

PATIENT
  Age: 48 Year
  Sex: Female

DRUGS (4)
  1. FENTORA [Suspect]
     Indication: NEURALGIA
     Dosage: 800 MCG, 2-3 TABLETS EVERY 6-8 HOURS, BU
     Route: 002
     Dates: start: 20060101
  2. SOMA [Suspect]
     Indication: MUSCLE SPASMS
     Dosage: 350 MG (350 MG, 1 IN 1 AS REQUIRED), ORAL
     Route: 048
  3. DILAUDID [Concomitant]
  4. METHADONE HCL [Concomitant]

REACTIONS (2)
  - DRUG PRESCRIBING ERROR [None]
  - INCORRECT DOSE ADMINISTERED [None]
